FAERS Safety Report 16513769 (Version 1)
Quarter: 2019Q3

REPORT INFORMATION
  Report Type: Spontaneous
  Country: US (occurrence: US)
  Receive Date: 20190701
  Receipt Date: 20190701
  Transmission Date: 20191004
  Serious: No
  Sender: FDA-Public Use
  Company Number: US-ROCHE-2122892

PATIENT
  Sex: Male

DRUGS (1)
  1. KLONOPIN [Suspect]
     Active Substance: CLONAZEPAM
     Indication: ANXIETY
     Route: 065

REACTIONS (4)
  - Appetite disorder [Unknown]
  - Anxiety [Unknown]
  - Irritability [Unknown]
  - Sleep disorder [Unknown]
